FAERS Safety Report 5446515-9 (Version None)
Quarter: 2007Q3

REPORT INFORMATION
  Report Type: 
  Country: None (occurrence: None)
  Receive Date: 20070907
  Receipt Date: 20070828
  Transmission Date: 20080115
  Serious: Yes (Other)
  Sender: FDA-Public Use
  Company Number: TW-JNJFOC-20070805549

PATIENT
  Age: 50 Year
  Sex: Male

DRUGS (4)
  1. TOPAMAX [Suspect]
     Route: 048
  2. TOPAMAX [Suspect]
     Indication: CONVULSION
     Route: 048
  3. DILANTIN [Concomitant]
  4. DEPAKENE [Concomitant]

REACTIONS (2)
  - MOTOR DYSFUNCTION [None]
  - OCULOGYRIC CRISIS [None]
